FAERS Safety Report 10394073 (Version 1)
Quarter: 2014Q3

REPORT INFORMATION
  Report Type: Spontaneous
  Country: US (occurrence: None)
  Receive Date: 20140818
  Receipt Date: 20140818
  Transmission Date: 20150326
  Serious: Yes (Hospitalization, Other)
  Sender: FDA-Public Use
  Company Number: TPU2014-00210

PATIENT
  Age: 61 Year
  Sex: Female

DRUGS (1)
  1. LIDODERM [Suspect]
     Active Substance: LIDOCAINE
     Indication: EXOSTOSIS
     Route: 061
     Dates: start: 201401

REACTIONS (6)
  - Hypotension [None]
  - Spinal fracture [None]
  - Acute respiratory distress syndrome [None]
  - Influenza [None]
  - Pneumonia [None]
  - Fall [None]
